FAERS Safety Report 9053713 (Version 2)
Quarter: 2013Q1

REPORT INFORMATION
  Report Type: Spontaneous
  Country: US (occurrence: US)
  Receive Date: 20130208
  Receipt Date: 20130307
  Transmission Date: 20140127
  Serious: No
  Sender: FDA-Public Use
  Company Number: US-BAYER-2013-010043

PATIENT
  Age: 32 Year
  Sex: Female
  Weight: 84.35 kg

DRUGS (18)
  1. BETASERON [Suspect]
     Dosage: 0.25 MG, QOD
     Route: 058
  2. EFFEXOR [Concomitant]
     Dosage: 50 MG, UNK,OT
  3. NEURONTIN [Concomitant]
     Dosage: 300 MG, UNK
     Route: 048
  4. DILAUDID [Concomitant]
     Dosage: 2 MG, UNK
     Route: 048
  5. SYNTHROID [Concomitant]
     Dosage: 25 ?G, UNK
     Route: 048
  6. CYPROHEPTADINE [Concomitant]
     Dosage: 4 MG, UNK
     Route: 048
  7. VALIUM [Concomitant]
     Dosage: 2 MG, UNK
     Route: 048
  8. BACLOFEN [Concomitant]
     Dosage: 10 MG, UNK
     Route: 048
  9. IMITREX [Concomitant]
     Dosage: 25 MG, UNK
     Route: 048
  10. PROMETHAZINE [Concomitant]
     Dosage: 50 MG, UNK
  11. PREVACID [Concomitant]
     Dosage: 30 MG, UNK
     Route: 048
  12. IBUPROFEN [Concomitant]
     Dosage: 200 MG, UNK
     Route: 048
  13. FISH OIL [Concomitant]
     Route: 048
  14. MULTIVITAMINS [Concomitant]
     Route: 048
  15. CALCIUM D [Concomitant]
     Route: 048
  16. TYLENOL [PARACETAMOL] [Concomitant]
     Dosage: 500 MG, UNK
     Route: 048
  17. NECON [Concomitant]
     Dosage: 1/50-28
     Route: 048
  18. PROBIOTICS [Concomitant]
     Route: 048

REACTIONS (3)
  - Influenza like illness [None]
  - Sinusitis [None]
  - Drug ineffective [None]
